FAERS Safety Report 13905706 (Version 1)
Quarter: 2017Q3

REPORT INFORMATION
  Report Type: Spontaneous
  Country: US (occurrence: US)
  Receive Date: 20170825
  Receipt Date: 20170825
  Transmission Date: 20171127
  Serious: No
  Sender: FDA-Public Use
  Company Number: US-TARO-2017TAR00573

PATIENT
  Age: 56 Year
  Sex: Female
  Weight: 72.56 kg

DRUGS (2)
  1. CLOBETASOL PROPIONATE OINTMENT USP 0.05% [Suspect]
     Active Substance: CLOBETASOL PROPIONATE
     Indication: LICHEN SCLEROSUS
     Dosage: UNK, 1X/DAY
     Route: 061
     Dates: start: 20170703, end: 20170706
  2. METHOCARBAMOL. [Concomitant]
     Active Substance: METHOCARBAMOL
     Dosage: UNK, 1X/DAY
     Dates: start: 20170515

REACTIONS (2)
  - Rash [Recovered/Resolved]
  - Drug administered at inappropriate site [Recovered/Resolved]

NARRATIVE: CASE EVENT DATE: 20170703
